FAERS Safety Report 25640267 (Version 1)
Quarter: 2025Q3

REPORT INFORMATION
  Report Type: Report from Study
  Country: PH (occurrence: PH)
  Receive Date: 20250804
  Receipt Date: 20250804
  Transmission Date: 20251021
  Serious: Yes (Death)
  Sender: OTSUKA
  Company Number: PH-MMM-Otsuka-YVM078OS

PATIENT
  Sex: Male

DRUGS (1)
  1. TOLVAPTAN [Suspect]
     Active Substance: TOLVAPTAN
     Indication: Cardiomegaly
     Dosage: 1 DF, TIW (15 MG 1 TABLET EVERY TUESDAY, THURSTDAY AND SATURDAY)
     Route: 048
     Dates: end: 20250623

REACTIONS (2)
  - Sudden cardiac death [Fatal]
  - Product use in unapproved indication [Unknown]

NARRATIVE: CASE EVENT DATE: 20250623
